FAERS Safety Report 12504451 (Version 2)
Quarter: 2016Q3

REPORT INFORMATION
  Report Type: Spontaneous
  Country: FR (occurrence: FR)
  Receive Date: 20160628
  Receipt Date: 20160812
  Transmission Date: 20161109
  Serious: Yes (Death)
  Sender: FDA-Public Use
  Company Number: PHHY2016FR087290

PATIENT
  Age: 97 Year
  Sex: Male

DRUGS (10)
  1. KARDEGIC [Concomitant]
     Active Substance: ASPIRIN LYSINE
     Indication: PRODUCT USED FOR UNKNOWN INDICATION
     Dosage: 75 MG, QD (0-1-0)
     Route: 048
     Dates: start: 201512
  2. LASILIX [Concomitant]
     Active Substance: FUROSEMIDE
     Indication: PRODUCT USED FOR UNKNOWN INDICATION
     Dosage: 40 MG, QD (1-0-0)
     Route: 048
     Dates: start: 201512
  3. DICLOFENAC MYLAN [Suspect]
     Active Substance: DICLOFENAC SODIUM
     Indication: LOCALISED INFECTION
     Dosage: 1 %, UNK
     Route: 003
     Dates: start: 20160504, end: 20160523
  4. VOLTARENE [Suspect]
     Active Substance: DICLOFENAC SODIUM
     Indication: LOCALISED INFECTION
     Dosage: 50 MG, TID (3 DF DAILY)
     Route: 048
     Dates: start: 20160504, end: 20160523
  5. OGASTORO [Concomitant]
     Active Substance: LANSOPRAZOLE
     Indication: PRODUCT USED FOR UNKNOWN INDICATION
     Dosage: 30 MG, QD (0-0-1)
     Route: 048
     Dates: start: 201512, end: 20160529
  6. NOVONORM [Concomitant]
     Active Substance: REPAGLINIDE
     Indication: PRODUCT USED FOR UNKNOWN INDICATION
     Dosage: 2 MG, TID (1-1-1)
     Route: 048
     Dates: start: 20151207, end: 20160525
  7. DELICAL BOISSON FRUITEE [Concomitant]
     Indication: PRODUCT USED FOR UNKNOWN INDICATION
     Dosage: DRINK, BID
     Route: 048
  8. AMOXICILLIN. [Concomitant]
     Active Substance: AMOXICILLIN
     Indication: PRODUCT USED FOR UNKNOWN INDICATION
     Dosage: 1 G, TID (3 DF DAILY)
     Route: 048
     Dates: start: 20160504, end: 20160523
  9. ALDACTONE [Concomitant]
     Active Substance: SPIRONOLACTONE
     Indication: PRODUCT USED FOR UNKNOWN INDICATION
     Dosage: 25 MG, QD (1-0-0)
     Route: 048
     Dates: start: 201512, end: 20160525
  10. LANTUS [Concomitant]
     Active Substance: INSULIN GLARGINE
     Indication: PRODUCT USED FOR UNKNOWN INDICATION
     Dosage: 20 IU, QD (1-0-0)
     Route: 058
     Dates: start: 201512

REACTIONS (1)
  - Infection [Fatal]

NARRATIVE: CASE EVENT DATE: 20160523
